FAERS Safety Report 21861959 (Version 3)
Quarter: 2023Q1

REPORT INFORMATION
  Report Type: Spontaneous
  Country: DE (occurrence: DE)
  Receive Date: 20230113
  Receipt Date: 20230131
  Transmission Date: 20230418
  Serious: Yes (Hospitalization, Other)
  Sender: FDA-Public Use
  Company Number: DE-BAUSCH-BL-2023-000585

PATIENT
  Age: 37 Year
  Sex: Female

DRUGS (9)
  1. XIFAXAN [Suspect]
     Active Substance: RIFAXIMIN
     Indication: Hepatic encephalopathy
     Route: 065
     Dates: start: 202207
  2. ENVARSUS XR [Suspect]
     Active Substance: TACROLIMUS
     Indication: Immunosuppressant drug therapy
     Route: 065
     Dates: start: 20221112
  3. TACROLIMUS [Suspect]
     Active Substance: TACROLIMUS
     Indication: Product used for unknown indication
     Route: 065
     Dates: end: 20221225
  4. URSODIOL [Concomitant]
     Active Substance: URSODIOL
     Indication: Hepatic encephalopathy
     Route: 065
     Dates: start: 202207
  5. CANRENOATE POTASSIUM [Concomitant]
     Active Substance: CANRENOATE POTASSIUM
     Indication: Hepatic encephalopathy
     Route: 065
     Dates: start: 202207
  6. TORSEMIDE [Concomitant]
     Active Substance: TORSEMIDE
     Indication: Hepatic encephalopathy
     Route: 065
     Dates: start: 202207
  7. LEVOTHYROXINE [Concomitant]
     Active Substance: LEVOTHYROXINE
     Indication: Hepatic encephalopathy
     Route: 065
     Dates: start: 202207
  8. HEPA-MERZ [ORNITHINE ASPARTATE] [Concomitant]
     Indication: Hepatic encephalopathy
     Route: 065
     Dates: start: 202207
  9. LACTULOSE [Concomitant]
     Active Substance: LACTULOSE
     Indication: Hepatic encephalopathy
     Route: 065
     Dates: start: 202207

REACTIONS (6)
  - Generalised oedema [Unknown]
  - Immobile [Unknown]
  - Skin discolouration [Unknown]
  - Blood bilirubin abnormal [Unknown]
  - Drug clearance decreased [Unknown]
  - Wheelchair user [Unknown]

NARRATIVE: CASE EVENT DATE: 20221101
